FAERS Safety Report 8565179 (Version 6)
Quarter: 2013Q2

REPORT INFORMATION
  Report Type: Spontaneous
  Country: US (occurrence: US)
  Receive Date: 20120516
  Receipt Date: 20130624
  Transmission Date: 20140414
  Serious: No
  Sender: FDA-Public Use
  Company Number: US-ASTRAZENECA-2011SE61315

PATIENT
  Age: 47 Year
  Sex: Female
  Weight: 65.8 kg

DRUGS (8)
  1. PULMICORT RESPULES [Suspect]
     Indication: CHRONIC OBSTRUCTIVE PULMONARY DISEASE
     Route: 055
  2. PULMICORT RESPULES [Suspect]
     Indication: CHRONIC OBSTRUCTIVE PULMONARY DISEASE
     Route: 055
     Dates: start: 2012
  3. SYMBICORT PMDI [Suspect]
     Indication: CHRONIC OBSTRUCTIVE PULMONARY DISEASE
     Dosage: 160/4.5 MCG, DAILY
     Route: 055
     Dates: start: 2012
  4. SEROQUEL [Suspect]
     Route: 048
  5. NEXIUM [Suspect]
     Indication: GASTROOESOPHAGEAL REFLUX DISEASE
     Route: 048
     Dates: start: 2011
  6. NEXIUM [Suspect]
     Indication: GASTROOESOPHAGEAL REFLUX DISEASE
     Dosage: 40 DAILY
     Route: 048
     Dates: start: 20130522, end: 20130601
  7. XANAX [Concomitant]
     Indication: ANXIETY
     Route: 048
     Dates: start: 201108
  8. TUMS [Concomitant]

REACTIONS (26)
  - Asthma [Unknown]
  - Fibromyalgia [Unknown]
  - Hernia [Unknown]
  - Musculoskeletal stiffness [Unknown]
  - Musculoskeletal stiffness [Unknown]
  - Chronic obstructive pulmonary disease [Unknown]
  - Adverse drug reaction [Unknown]
  - Nasopharyngitis [Unknown]
  - Malaise [Unknown]
  - Rheumatoid arthritis [Unknown]
  - Gastric disorder [Unknown]
  - Neoplasm [Unknown]
  - Asthma [Unknown]
  - Gastrooesophageal reflux disease [Not Recovered/Not Resolved]
  - Aphagia [Unknown]
  - Muscle spasms [Unknown]
  - Dyspnoea [Unknown]
  - Muscle twitching [Unknown]
  - Muscle twitching [Unknown]
  - Anxiety [Unknown]
  - Insomnia [Unknown]
  - Panic attack [Unknown]
  - Drug hypersensitivity [Unknown]
  - Intentional drug misuse [Unknown]
  - Intentional drug misuse [Unknown]
  - Off label use [Unknown]
